FAERS Safety Report 19825661 (Version 1)
Quarter: 2021Q3

REPORT INFORMATION
  Report Type: Spontaneous
  Country: US (occurrence: US)
  Receive Date: 20210914
  Receipt Date: 20210914
  Transmission Date: 20211014
  Serious: No
  Sender: FDA-Public Use
  Company Number: US-SPECGX-T202101515

PATIENT
  Age: 66 Year
  Sex: Female

DRUGS (3)
  1. PAMELOR [Suspect]
     Active Substance: NORTRIPTYLINE HYDROCHLORIDE
     Dosage: 2 DOSAGE FORM
     Route: 065
  2. PAMELOR [Suspect]
     Active Substance: NORTRIPTYLINE HYDROCHLORIDE
     Indication: NEURALGIA
     Dosage: 2 DOSAGE FORM
     Route: 065
  3. PAMELOR [Suspect]
     Active Substance: NORTRIPTYLINE HYDROCHLORIDE
     Dosage: 4 DOSAGE FORM
     Route: 065

REACTIONS (3)
  - Headache [Not Recovered/Not Resolved]
  - Product use in unapproved indication [Unknown]
  - Somnolence [Unknown]
